FAERS Safety Report 15174143 (Version 1)
Quarter: 2018Q3

REPORT INFORMATION
  Report Type: Report from Study
  Country: US (occurrence: US)
  Receive Date: 20180720
  Receipt Date: 20180720
  Transmission Date: 20181010
  Serious: No
  Sender: FDA-Public Use
  Company Number: US-AMGEN-USASL2018057083

PATIENT
  Age: 50 Year
  Sex: Male

DRUGS (1)
  1. REPATHA [Suspect]
     Active Substance: EVOLOCUMAB
     Indication: HYPERCHOLESTEROLAEMIA
     Dosage: 140 MG, Q2WK
     Route: 065
     Dates: start: 20180420

REACTIONS (7)
  - Pain [Unknown]
  - Back pain [Unknown]
  - Fatigue [Unknown]
  - Asthenia [Unknown]
  - Pain in extremity [Not Recovered/Not Resolved]
  - Blood pressure fluctuation [Unknown]
  - Contusion [Unknown]

NARRATIVE: CASE EVENT DATE: 201804
